FAERS Safety Report 17195969 (Version 1)
Quarter: 2019Q4

REPORT INFORMATION
  Report Type: Spontaneous
  Country: JP (occurrence: JP)
  Receive Date: 20191224
  Receipt Date: 20191224
  Transmission Date: 20200122
  Serious: Yes (Death)
  Sender: FDA-Public Use
  Company Number: JP-ACTELION-A-CH2019-199497

PATIENT
  Age: 33 Year
  Sex: Male

DRUGS (9)
  1. BOSENTAN. [Suspect]
     Active Substance: BOSENTAN
     Indication: RIGHT-TO-LEFT CARDIAC SHUNT
     Route: 048
  2. SPIRONOLACTONE. [Concomitant]
     Active Substance: SPIRONOLACTONE
  3. FUROSEMIDE. [Concomitant]
     Active Substance: FUROSEMIDE
  4. MEXILETINE [Concomitant]
     Active Substance: MEXILETINE
  5. DIPYRIDAMOLE. [Concomitant]
     Active Substance: DIPYRIDAMOLE
  6. CAPTOPRIL. [Concomitant]
     Active Substance: CAPTOPRIL
  7. ALLOPURINOL. [Concomitant]
     Active Substance: ALLOPURINOL
  8. DIGOXIN. [Concomitant]
     Active Substance: DIGOXIN
  9. OXYGEN. [Concomitant]
     Active Substance: OXYGEN

REACTIONS (6)
  - Hypoxia [Unknown]
  - Concomitant disease aggravated [Unknown]
  - Cardiac failure [Fatal]
  - Tooth extraction [Unknown]
  - Hyperactive pharyngeal reflex [Unknown]
  - Dental caries [Unknown]
